FAERS Safety Report 7996244-2 (Version None)
Quarter: 2011Q4

REPORT INFORMATION
  Report Type: 
  Country: None (occurrence: None)
  Receive Date: 20111220
  Receipt Date: 20111214
  Transmission Date: 20120403
  Serious: Yes (Hospitalization)
  Sender: FDA-Public Use
  Company Number: GB-TEVA-313706ISR

PATIENT
  Age: 40 Year
  Sex: Female

DRUGS (8)
  1. METHOTREXATE [Interacting]
  2. AMOXICILLIN [Concomitant]
     Route: 048
  3. DOXYCYCLINE [Suspect]
     Route: 048
     Dates: start: 20111103, end: 20111103
  4. FOLIC ACID [Concomitant]
     Route: 048
  5. ALBUTEROL SULFATE AUTOHALER [Concomitant]
     Dosage: TWO PUFFS AS NECESSARY
     Route: 055
  6. BRINZOLAMIDE [Concomitant]
     Dosage: 10MG/ML
  7. TIMOLOL AND BIMATOPROST [Concomitant]
  8. CO-DYDRAMOL [Concomitant]
     Dosage: TWO EVERY FOUR HOURS.
     Route: 048

REACTIONS (2)
  - TOXICITY TO VARIOUS AGENTS [None]
  - DRUG INTERACTION [None]
